FAERS Safety Report 5162708-2 (Version None)
Quarter: 2006Q4

REPORT INFORMATION
  Report Type: 
  Country: None (occurrence: None)
  Receive Date: 20061201
  Receipt Date: 20060817
  Transmission Date: 20070319
  Serious: No
  Sender: FDA-Public Use
  Company Number: US-GLAXOSMITHKLINE-A0617125A

PATIENT
  Age: 70 Year
  Sex: Male

DRUGS (5)
  1. AUGMENTIN '125' [Suspect]
     Indication: BRONCHITIS
     Dosage: 1750MG TWICE PER DAY
     Route: 048
     Dates: start: 20060814
  2. COUMADIN [Concomitant]
  3. PROTONIX [Concomitant]
  4. CALCIUM CHANNEL BLOCKER [Concomitant]
  5. ANGIOTENSIN [Concomitant]

REACTIONS (1)
  - DIARRHOEA [None]
